FAERS Safety Report 8212417-8 (Version None)
Quarter: 2012Q1

REPORT INFORMATION
  Report Type: 
  Country: None (occurrence: None)
  Receive Date: 20120228
  Receipt Date: 20110118
  Transmission Date: 20120608
  Serious: Yes (Hospitalization, Other)
  Sender: FDA-Public Use
  Company Number: US201011002381

PATIENT
  Age: 58 Year
  Sex: Male
  Weight: 108.4 kg

DRUGS (15)
  1. LISINOPRIL [Concomitant]
  2. PROLIXIN DECANOATE [Concomitant]
  3. PROTONIX [Concomitant]
  4. NIACIN [Concomitant]
  5. ASPIRIN [Concomitant]
  6. CYMBALTA [Concomitant]
  7. DILANTIN [Concomitant]
  8. OLANZAPINE [Concomitant]
  9. OLANZAPINE [Suspect]
     Indication: SCHIZOPHRENIA
     Dosage: 405 MG, MONTHLY (1/M), INTRAMUSCULAR
     Route: 029
     Dates: start: 20100716, end: 20101202
  10. OLANZAPINE [Suspect]
     Indication: SCHIZOPHRENIA
     Dosage: 405 MG, MONTHLY (1/M), INTRAMUSCULAR
     Route: 029
     Dates: start: 20100813
  11. OLANZAPINE [Suspect]
     Indication: SCHIZOPHRENIA
     Dosage: 405 MG, MONTHLY (1/M), INTRAMUSCULAR
     Route: 029
     Dates: start: 20100910
  12. OLANZAPINE [Suspect]
     Indication: SCHIZOPHRENIA
     Dosage: 405 MG, MONTHLY (1/M), INTRAMUSCULAR
     Route: 029
     Dates: start: 20101201
  13. OLANZAPINE [Suspect]
     Indication: SCHIZOPHRENIA
     Dosage: 405 MG, MONTHLY (1/M), INTRAMUSCULAR
     Route: 029
     Dates: start: 20101008
  14. OLANZAPINE [Suspect]
     Indication: SCHIZOPHRENIA
     Dosage: 405 MG, MONTHLY (1/M), INTRAMUSCULAR
     Route: 029
     Dates: start: 20101105
  15. DIAZIDE (GLICLAZIDE) [Concomitant]

REACTIONS (11)
  - DYSARTHRIA [None]
  - DEPRESSED LEVEL OF CONSCIOUSNESS [None]
  - ASTHENIA [None]
  - DISORIENTATION [None]
  - SEDATION [None]
  - HYPOTENSION [None]
  - CONFUSIONAL STATE [None]
  - DROOLING [None]
  - DIZZINESS [None]
  - GAIT DISTURBANCE [None]
  - SOMNOLENCE [None]
